FAERS Safety Report 12155347 (Version 1)
Quarter: 2016Q1

REPORT INFORMATION
  Report Type: Report from Study
  Country: JP (occurrence: JP)
  Receive Date: 20160307
  Receipt Date: 20160307
  Transmission Date: 20160526
  Serious: Yes (Death)
  Sender: FDA-Public Use
  Company Number: JP-ASTRAZENECA-2016SE25316

PATIENT
  Age: 74 Year
  Sex: Male

DRUGS (1)
  1. MEROPEN [Suspect]
     Active Substance: MEROPENEM
     Indication: AORTIC DISSECTION
     Route: 041

REACTIONS (4)
  - Pneumonia [Fatal]
  - Toxic epidermal necrolysis [Fatal]
  - Disseminated intravascular coagulation [Fatal]
  - Intestinal perforation [Fatal]
